FAERS Safety Report 25015332 (Version 1)
Quarter: 2025Q1

REPORT INFORMATION
  Report Type: Spontaneous
  Country: US (occurrence: US)
  Receive Date: 20250226
  Receipt Date: 20250226
  Transmission Date: 20250409
  Serious: No
  Sender: ROCHE
  Company Number: US-ROCHE-10000211421

PATIENT
  Sex: Female

DRUGS (2)
  1. XOLAIR PFS [Suspect]
     Active Substance: OMALIZUMAB
     Indication: Product used for unknown indication
     Route: 058
     Dates: start: 202403, end: 202408
  2. XOLAIR PFS [Suspect]
     Active Substance: OMALIZUMAB
     Route: 058
     Dates: start: 202501

REACTIONS (8)
  - Incorrect dose administered [Unknown]
  - Urticaria [Unknown]
  - Device difficult to use [Unknown]
  - Exposure via skin contact [Unknown]
  - Device defective [Unknown]
  - Therapeutic response decreased [Unknown]
  - Visual impairment [Unknown]
  - Device issue [Unknown]

NARRATIVE: CASE EVENT DATE: 20250216
